FAERS Safety Report 16536225 (Version 5)
Quarter: 2020Q1

REPORT INFORMATION
  Report Type: Spontaneous
  Country: US (occurrence: US)
  Receive Date: 20190705
  Receipt Date: 20200212
  Transmission Date: 20200409
  Serious: No
  Sender: FDA-Public Use
  Company Number: US-PFIZER INC-2019285754

PATIENT
  Age: 73 Year
  Sex: Female
  Weight: 66.21 kg

DRUGS (2)
  1. IBRANCE [Suspect]
     Active Substance: PALBOCICLIB
     Indication: BREAST CANCER METASTATIC
     Dosage: 75 MG,CYCLIC (ONCE FOR 21 DAYS OFF FOR 7 DAYS)
     Route: 048
     Dates: start: 20171101
  2. LETROZOLE. [Concomitant]
     Active Substance: LETROZOLE
     Dosage: 2.5 MG, DAILY
     Dates: start: 201712

REACTIONS (1)
  - Hypoacusis [Not Recovered/Not Resolved]
